FAERS Safety Report 8285902 (Version 2)
Quarter: 2014Q2

REPORT INFORMATION
  Report Type: Spontaneous
  Country: US (occurrence: US)
  Receive Date: 20111213
  Receipt Date: 20140507
  Transmission Date: 20141212
  Serious: Yes (Hospitalization)
  Sender: FDA-Public Use
  Company Number: US-AMGEN-USASP2011039794

PATIENT
  Age: 61 Year
  Sex: Male
  Weight: 74 kg

DRUGS (7)
  1. ARANESP [Suspect]
     Indication: MESOTHELIOMA
     Dosage: UNK
     Route: 065
  2. CISPLATIN [Concomitant]
     Indication: MESOTHELIOMA
     Dosage: 75 MG/M2, Q3WK
     Route: 042
     Dates: start: 20090714
  3. PEMETREXED [Concomitant]
     Indication: MESOTHELIOMA
     Dosage: 500 MG/M2, Q3WK
     Route: 042
     Dates: start: 20090714
  4. LISINOPRIL [Concomitant]
     Dosage: 20 MG, UNK
     Route: 048
  5. PERCOCET                           /00446701/ [Concomitant]
     Route: 048
  6. FOLIC ACID [Concomitant]
     Dosage: 1 MG, QD
     Route: 048
  7. B12-VITAMIIN [Concomitant]
     Dosage: UNK ONCE ONLY
     Route: 058
     Dates: start: 20100107

REACTIONS (1)
  - Hypertension [Recovered/Resolved]
